FAERS Safety Report 4402140-X (Version None)
Quarter: 2004Q3

REPORT INFORMATION
  Report Type: 
  Country: None (occurrence: None)
  Receive Date: 20040714
  Receipt Date: 20040712
  Transmission Date: 20050211
  Serious: Yes (Other)
  Sender: FDA-Public Use
  Company Number: 200411383BCC

PATIENT
  Age: 84 Year
  Sex: Female
  Weight: 56.6996 kg

DRUGS (10)
  1. ALEVE (CAPLET) [Suspect]
     Indication: ARTHRITIS
     Dosage: 220 MG, ONCE, ORAL; SEE IMAGE
     Route: 048
     Dates: start: 20040318, end: 20040321
  2. ALEVE (CAPLET) [Suspect]
     Indication: PAIN
     Dosage: 220 MG, ONCE, ORAL; SEE IMAGE
     Route: 048
     Dates: start: 20040318, end: 20040321
  3. ALEVE (CAPLET) [Suspect]
     Indication: ARTHRITIS
     Dosage: 220 MG, ONCE, ORAL; SEE IMAGE
     Route: 048
     Dates: start: 20040317
  4. ALEVE (CAPLET) [Suspect]
     Indication: PAIN
     Dosage: 220 MG, ONCE, ORAL; SEE IMAGE
     Route: 048
     Dates: start: 20040317
  5. ALEVE (CAPLET) [Suspect]
     Indication: ARTHRITIS
     Dosage: 220 MG, ONCE, ORAL; SEE IMAGE
     Route: 048
     Dates: start: 20040322
  6. ALEVE (CAPLET) [Suspect]
     Indication: PAIN
     Dosage: 220 MG, ONCE, ORAL; SEE IMAGE
     Route: 048
     Dates: start: 20040322
  7. DYAZIDE [Concomitant]
  8. MONOPRIL [Concomitant]
  9. ZOCOR [Concomitant]
  10. ST. JOSEPH ASPIRIN [Concomitant]

REACTIONS (2)
  - BLOOD PRESSURE FLUCTUATION [None]
  - BLOOD PRESSURE SYSTOLIC INCREASED [None]
